FAERS Safety Report 4700603-0 (Version None)
Quarter: 2005Q2

REPORT INFORMATION
  Report Type: 
  Country: None (occurrence: None)
  Receive Date: 20050627
  Receipt Date: 20050615
  Transmission Date: 20051028
  Serious: Yes (Other)
  Sender: FDA-Public Use
  Company Number: 200511813JP

PATIENT
  Age: 56 Year
  Sex: Female

DRUGS (6)
  1. ARAVA [Suspect]
     Indication: RHEUMATOID ARTHRITIS
     Route: 048
     Dates: start: 20041125, end: 20050217
  2. SPIROPENT [Concomitant]
     Indication: BRONCHITIS
     Route: 048
  3. ACTONEL [Concomitant]
     Indication: OSTEOPOROSIS
     Route: 048
  4. LOXONIN [Concomitant]
     Indication: PAIN
     Route: 048
  5. TAKEPRON [Concomitant]
     Indication: GASTRITIS
     Route: 048
  6. LENDORM [Concomitant]
     Indication: INSOMNIA
     Route: 048

REACTIONS (1)
  - NEPHROTIC SYNDROME [None]
